FAERS Safety Report 4886822-1 (Version None)
Quarter: 2006Q1

REPORT INFORMATION
  Report Type: 
  Country: None (occurrence: None)
  Receive Date: 20060119
  Receipt Date: 20060119
  Transmission Date: 20060701
  Serious: Yes (Other)
  Sender: FDA-Public Use
  Company Number: None

PATIENT
  Age: 35 Year
  Sex: Male

DRUGS (1)
  1. TORADOL [Suspect]
     Indication: HEADACHE
     Dosage: 60MG IM X1
     Route: 030
     Dates: start: 20050623

REACTIONS (9)
  - ABSCESS DRAINAGE [None]
  - BACK PAIN [None]
  - IMPAIRED HEALING [None]
  - INJECTION SITE ABSCESS [None]
  - LYMPHADENITIS [None]
  - MYCOBACTERIUM ABSCESSUS INFECTION [None]
  - PAIN [None]
  - PROSTATIC PAIN [None]
  - URETHRAL DISORDER [None]
